FAERS Safety Report 8089180-7 (Version None)
Quarter: 2012Q1

REPORT INFORMATION
  Report Type: 
  Country: None (occurrence: None)
  Receive Date: 20120128
  Receipt Date: 20110624
  Transmission Date: 20120608
  Serious: No
  Sender: FDA-Public Use
  Company Number: US-ABBOTT-11P-163-0731821-00

PATIENT
  Age: 57 Year
  Sex: Male

DRUGS (2)
  1. HUMIRA [Suspect]
     Indication: PSORIASIS
     Dates: start: 20110401, end: 20110610
  2. ASPIRIN [Concomitant]
     Indication: ANTICOAGULANT THERAPY

REACTIONS (5)
  - DRUG DOSE OMISSION [None]
  - GONORRHOEA [None]
  - URETHRAL DISCHARGE [None]
  - DIARRHOEA [None]
  - MALAISE [None]
